FAERS Safety Report 5937055-9 (Version None)
Quarter: 2008Q4

REPORT INFORMATION
  Report Type: 
  Country: None (occurrence: None)
  Receive Date: 20081031
  Receipt Date: 20081024
  Transmission Date: 20090506
  Serious: Yes (Other)
  Sender: FDA-Public Use
  Company Number: PT-BAYER-200829235GPV

PATIENT
  Age: 59 Year
  Sex: Female

DRUGS (1)
  1. MOXIFLOXACIN HCL [Suspect]
     Indication: OTITIS EXTERNA
     Dosage: TOTAL DAILY DOSE: 400 MG  UNIT DOSE: 400 MG
     Route: 048
     Dates: start: 20080704, end: 20080704

REACTIONS (9)
  - ALTERED STATE OF CONSCIOUSNESS [None]
  - BALANCE DISORDER [None]
  - DIZZINESS [None]
  - DYSSTASIA [None]
  - FEELING COLD [None]
  - MALAISE [None]
  - PRESYNCOPE [None]
  - SYNCOPE [None]
  - THIRST [None]
